FAERS Safety Report 6766209-7 (Version None)
Quarter: 2010Q2

REPORT INFORMATION
  Report Type: 
  Country: None (occurrence: None)
  Receive Date: 20100609
  Receipt Date: 20100527
  Transmission Date: 20101027
  Serious: Yes (Hospitalization)
  Sender: FDA-Public Use
  Company Number: 2010AP001114

PATIENT
  Age: 66 Year
  Sex: Female

DRUGS (6)
  1. OMEPRAZOLE [Suspect]
     Route: 048
     Dates: end: 20090101
  2. RABEPRAZOLE SODIUM [Suspect]
     Indication: HIATUS HERNIA
     Dosage: 40 MG; PO
     Route: 048
     Dates: start: 20090101, end: 20100301
  3. ALFACALCIDOL (ALFACALCIDOL) [Concomitant]
  4. ATENOLOL [Concomitant]
  5. CALCIUM CARBONATE [Concomitant]
  6. ESTROGENS CONJUGATED (ESTROGEN [Concomitant]

REACTIONS (2)
  - HYPOMAGNESAEMIA [None]
  - PANCREATITIS ACUTE [None]
